FAERS Safety Report 13585204 (Version 6)
Quarter: 2018Q1

REPORT INFORMATION
  Report Type: Report from Study
  Country: US (occurrence: US)
  Receive Date: 20170526
  Receipt Date: 20180221
  Transmission Date: 20180508
  Serious: Yes (Hospitalization, Other)
  Sender: FDA-Public Use
  Company Number: US-ALEXION-A201705645

PATIENT
  Age: 28 Year
  Sex: Female

DRUGS (3)
  1. KANUMA [Suspect]
     Active Substance: SEBELIPASE ALFA
     Indication: LYSOSOMAL ACID LIPASE DEFICIENCY
     Dosage: 1 MG/KG, Q2W
     Route: 042
  2. PREDNISONE. [Concomitant]
     Active Substance: PREDNISONE
     Indication: PROPHYLAXIS
     Dosage: 60 MG, THE NIGHT BEFORE INFUSION
     Route: 048
  3. BENADRYL [Concomitant]
     Active Substance: DIPHENHYDRAMINE HYDROCHLORIDE
     Indication: PRODUCT USED FOR UNKNOWN INDICATION
     Dosage: 25 MG, MORNING OF INFUSION
     Route: 048

REACTIONS (8)
  - Chest discomfort [Unknown]
  - Anaphylactic reaction [Not Recovered/Not Resolved]
  - Pharyngeal oedema [Unknown]
  - Pruritus [Unknown]
  - Drug hypersensitivity [Recovered/Resolved]
  - Infusion related reaction [Not Recovered/Not Resolved]
  - Urticaria [Unknown]
  - Underdose [Recovered/Resolved]

NARRATIVE: CASE EVENT DATE: 20170713
